FAERS Safety Report 4644331-9 (Version None)
Quarter: 2005Q2

REPORT INFORMATION
  Report Type: 
  Country: None (occurrence: None)
  Receive Date: 20050422
  Receipt Date: 20050407
  Transmission Date: 20051028
  Serious: Yes (Other)
  Sender: FDA-Public Use
  Company Number: 200510210BCA

PATIENT
  Age: 79 Year
  Sex: Female

DRUGS (6)
  1. AVELOX [Suspect]
     Dosage: 400 MG, TOTAL DAILY, ORAL
     Route: 048
  2. LAXATIVES [Concomitant]
  3. METYOCLOPRAMIDE [Concomitant]
  4. MULTI-VITAMIN [Concomitant]
  5. SEROQUEL [Concomitant]
  6. THIAMINE [Concomitant]

REACTIONS (7)
  - ARTHRALGIA [None]
  - CONFUSIONAL STATE [None]
  - DEEP VEIN THROMBOSIS [None]
  - DELIRIUM [None]
  - HALLUCINATION, VISUAL [None]
  - JOINT EFFUSION [None]
  - OEDEMA PERIPHERAL [None]
